FAERS Safety Report 6573649-8 (Version None)
Quarter: 2010Q1

REPORT INFORMATION
  Report Type: 
  Country: None (occurrence: None)
  Receive Date: 20100208
  Receipt Date: 20100201
  Transmission Date: 20100710
  Serious: Yes (Hospitalization)
  Sender: FDA-Public Use
  Company Number: ES-TEVA-223342ISR

PATIENT
  Age: 3 Month
  Sex: Female

DRUGS (5)
  1. IPRATROPIUM [Suspect]
     Indication: BRONCHIOLITIS
  2. ALBUTEROL [Concomitant]
  3. EPINEPHRINE [Concomitant]
  4. HYDROCORTISONE [Concomitant]
     Route: 042
  5. CEFOTAXIME [Concomitant]
     Route: 042

REACTIONS (1)
  - PUPILS UNEQUAL [None]
